FAERS Safety Report 20305392 (Version 1)
Quarter: 2022Q1

REPORT INFORMATION
  Report Type: Spontaneous
  Country: AT (occurrence: AT)
  Receive Date: 20220106
  Receipt Date: 20220106
  Transmission Date: 20220423
  Serious: Yes (Other)
  Sender: FDA-Public Use
  Company Number: AT-GLPHARMA-21.1375

PATIENT
  Age: 67 Year
  Weight: 42 kg

DRUGS (10)
  1. DESLORATADINE [Interacting]
     Active Substance: DESLORATADINE
     Indication: Hypersensitivity
     Dosage: EVERY FEW DAYS
  2. MORPHINE HYDROCHLORIDE [Interacting]
     Active Substance: MORPHINE HYDROCHLORIDE
     Dosage: 0.5 MG EVERY 4 HOURS,(STRENGTH: 5 MG/ML)
     Dates: start: 2021
  3. MORPHINE HYDROCHLORIDE [Interacting]
     Active Substance: MORPHINE HYDROCHLORIDE
     Dosage: STRENGTH: 5 MG/ML
     Dates: start: 202110
  4. FLUDROCORTISONE [Interacting]
     Active Substance: FLUDROCORTISONE
     Dosage: UNK
  5. ALPRAZOLAM [Interacting]
     Active Substance: ALPRAZOLAM
     Dosage: UNK
  6. AMLODIPINE BESYLATE [Interacting]
     Active Substance: AMLODIPINE BESYLATE
     Indication: Blood pressure abnormal
     Dosage: UNK
  7. MORPHINE HYDROCHLORIDE [Suspect]
     Active Substance: MORPHINE HYDROCHLORIDE
     Dosage: INFUSION
     Dates: start: 2021, end: 2021
  8. CANNABIDIOL\HERBALS [Interacting]
     Active Substance: CANNABIDIOL\HERBALS
     Dosage: DROP (1/12 MILLILITRE)
     Dates: end: 20211213
  9. HYDROCORTISONE ACETATE [Interacting]
     Active Substance: HYDROCORTISONE ACETATE
     Indication: Adrenal insufficiency
     Dosage: UNK
  10. ZOLPIDEM TARTRATE [Interacting]
     Active Substance: ZOLPIDEM TARTRATE
     Dosage: IN THE EVENING

REACTIONS (13)
  - Ileus paralytic [Not Recovered/Not Resolved]
  - Constipation [Not Recovered/Not Resolved]
  - Drug interaction [Not Recovered/Not Resolved]
  - Dizziness [Not Recovered/Not Resolved]
  - Anxiety [Not Recovered/Not Resolved]
  - Blood pressure fluctuation [Not Recovered/Not Resolved]
  - Mental disorder [Not Recovered/Not Resolved]
  - Malaise [Not Recovered/Not Resolved]
  - Therapeutic product effect incomplete [Not Recovered/Not Resolved]
  - Feeling abnormal [Not Recovered/Not Resolved]
  - Abdominal pain upper [Not Recovered/Not Resolved]
  - Panic attack [Not Recovered/Not Resolved]
  - Mental disorder [Not Recovered/Not Resolved]

NARRATIVE: CASE EVENT DATE: 20210101
